FAERS Safety Report 15792489 (Version 1)
Quarter: 2019Q1

REPORT INFORMATION
  Report Type: Report from Study
  Country: CO (occurrence: CO)
  Receive Date: 20190107
  Receipt Date: 20190107
  Transmission Date: 20190417
  Serious: Yes (Hospitalization)
  Sender: FDA-Public Use
  Company Number: CO-EMD SERONO-9062347

PATIENT
  Age: 10 Year
  Sex: Female

DRUGS (1)
  1. SAIZEN [Suspect]
     Active Substance: SOMATROPIN
     Indication: GROWTH HORMONE DEFICIENCY
     Dates: start: 20181110, end: 201812

REACTIONS (1)
  - Intracranial pressure increased [Recovering/Resolving]

NARRATIVE: CASE EVENT DATE: 20181226
